FAERS Safety Report 7682422-9 (Version None)
Quarter: 2011Q3

REPORT INFORMATION
  Report Type: 
  Country: None (occurrence: None)
  Receive Date: 20110808
  Receipt Date: 20110727
  Transmission Date: 20111222
  Serious: Yes (Hospitalization)
  Sender: FDA-Public Use
  Company Number: DSA_46992_2011

PATIENT
  Age: 92 Year
  Sex: Female

DRUGS (9)
  1. UVEDOSE (UVEDOSE - COLECALCIFEROL) 2 DF (NOT SPECIFIED) [Suspect]
     Indication: PRODUCT USED FOR UNKNOWN INDICATION
     Dosage: 2 DF 1X/MONTH, ORAL
     Route: 048
     Dates: start: 20110603
  2. DILTIAZEM HCL [Suspect]
     Indication: ARRHYTHMIA
     Dosage: 60 MG QD, ORAL
     Route: 048
     Dates: start: 20110521
  3. PLAVIX [Suspect]
     Indication: PRODUCT USED FOR UNKNOWN INDICATION
     Dosage: 75 MG QD, ORAL
     Route: 048
     Dates: start: 20110519, end: 20110606
  4. KARDEGIC (KARDEGIC - ACETYLSALICYLATE LYSIN) 75 MG (NOT SPECIFIED) [Suspect]
     Indication: PRODUCT USED FOR UNKNOWN INDICATION
     Dosage: 75 MG QD, ORAL
     Route: 048
  5. MORPHINE SULFATE [Suspect]
     Indication: SPINAL COMPRESSION FRACTURE
     Dosage: 5 MG, FREQUENCY UNKNOWN, ORAL
     Route: 048
     Dates: start: 20110513
  6. LOVENOX [Suspect]
     Indication: THROMBOSIS PROPHYLAXIS
     Dosage: 0.4 ML QD, SUBCUTANEOUS
     Route: 058
     Dates: start: 20110513
  7. ACETAMINOPHEN [Suspect]
     Indication: SPINAL COMPRESSION FRACTURE
     Dosage: DF, ORAL
     Route: 048
     Dates: start: 20110513
  8. CACIT VITAMINS D3 (CACIT VITAMINE D3 CALCIUM CARBONATE COLECALCIFEROL) [Suspect]
     Indication: OSTEOPOROSIS
     Dosage: 1 DF QD, ORAL
     Route: 048
     Dates: start: 20110520
  9. ESOMEPRAZOLE MAGNESIUM [Suspect]
     Indication: GASTRITIS
     Dosage: 40 MG, QD, ORAL
     Route: 048
     Dates: start: 20110531

REACTIONS (4)
  - BACK PAIN [None]
  - FALL [None]
  - ARTHRITIS [None]
  - HENOCH-SCHONLEIN PURPURA [None]
